FAERS Safety Report 11470365 (Version 2)
Quarter: 2015Q3

REPORT INFORMATION
  Report Type: Spontaneous
  Country: US (occurrence: US)
  Receive Date: 20150903
  Receipt Date: 20150903
  Transmission Date: 20151125
  Serious: No
  Sender: FDA-Public Use
  Company Number: US-ELI_LILLY_AND_COMPANY-US201111008963

PATIENT
  Age: 61 Year
  Sex: Female

DRUGS (6)
  1. LISINOPRIL. [Concomitant]
     Active Substance: LISINOPRIL
  2. LASIX [Concomitant]
     Active Substance: FUROSEMIDE
  3. CYMBALTA [Suspect]
     Active Substance: DULOXETINE HYDROCHLORIDE
     Indication: BACK PAIN
     Dosage: 30 MG, QD
  4. CYMBALTA [Suspect]
     Active Substance: DULOXETINE HYDROCHLORIDE
     Dosage: 60 MG, QD
     Dates: end: 201111
  5. COREG [Concomitant]
     Active Substance: CARVEDILOL
  6. CYMBALTA [Suspect]
     Active Substance: DULOXETINE HYDROCHLORIDE
     Dosage: 30 MG, QD
     Dates: start: 20111128

REACTIONS (11)
  - Unevaluable event [Unknown]
  - Intentional product misuse [Recovered/Resolved]
  - Hyperhidrosis [Unknown]
  - Urine flow decreased [Unknown]
  - Upper respiratory tract infection [Unknown]
  - Insomnia [Unknown]
  - Drug ineffective [Recovered/Resolved]
  - Dry mouth [Unknown]
  - Somnolence [Unknown]
  - Foot fracture [Unknown]
  - Tooth fracture [Unknown]
